FAERS Safety Report 6857791-X (Version None)
Quarter: 2010Q3

REPORT INFORMATION
  Report Type: 
  Country: None (occurrence: None)
  Receive Date: 20100719
  Receipt Date: 20080131
  Transmission Date: 20110219
  Serious: No
  Sender: FDA-Public Use
  Company Number: US-PFIZER INC-2008010536

PATIENT
  Sex: Male

DRUGS (1)
  1. CHANTIX [Suspect]
     Dates: start: 20080101

REACTIONS (5)
  - ABNORMAL DREAMS [None]
  - DRUG INEFFECTIVE [None]
  - INSOMNIA [None]
  - POLLAKIURIA [None]
  - SOMNOLENCE [None]
